FAERS Safety Report 8011976-8 (Version None)
Quarter: 2011Q4

REPORT INFORMATION
  Report Type: 
  Country: None (occurrence: None)
  Receive Date: 20111228
  Receipt Date: 20111221
  Transmission Date: 20120403
  Serious: Yes (Other)
  Sender: FDA-Public Use
  Company Number: US-GLAXOSMITHKLINE-A0958986A

PATIENT
  Age: 61 Year
  Sex: Female

DRUGS (14)
  1. METOPROLOL SUCCINATE [Concomitant]
  2. VERAPAMIL [Concomitant]
  3. METFORMIN HCL [Concomitant]
  4. GLYBURIDE [Concomitant]
  5. WARFARIN SODIUM [Concomitant]
  6. FUROSEMIDE [Concomitant]
  7. ALENDRONATE SODIUM [Concomitant]
  8. TRAZODONE HCL [Concomitant]
  9. OMEPRAZOLE [Concomitant]
  10. HYDROCODONE [Concomitant]
  11. COLCHICINE [Concomitant]
  12. POTASSIUM [Concomitant]
  13. NIACIN [Concomitant]
  14. ADVAIR DISKUS 100/50 [Suspect]
     Indication: CHRONIC OBSTRUCTIVE PULMONARY DISEASE
     Dosage: 2PUFF TWICE PER DAY
     Route: 055
     Dates: end: 20111217

REACTIONS (3)
  - DYSPHONIA [None]
  - LARYNGEAL NEOPLASM [None]
  - APHONIA [None]
